FAERS Safety Report 25699204 (Version 1)
Quarter: 2025Q3

REPORT INFORMATION
  Report Type: Spontaneous
  Country: CN (occurrence: CN)
  Receive Date: 20250819
  Receipt Date: 20250819
  Transmission Date: 20251021
  Serious: Yes (Hospitalization, Other)
  Sender: DAIICHI
  Company Number: CN-DSJP-DS-2025-159238-CN

PATIENT
  Age: 64 Year
  Sex: Female
  Weight: 58 kg

DRUGS (2)
  1. TRASTUZUMAB DERUXTECAN [Suspect]
     Active Substance: TRASTUZUMAB DERUXTECAN
     Indication: Lung adenocarcinoma
     Dosage: 300 MG, QD
     Route: 041
     Dates: start: 20250507, end: 20250507
  2. AUMOLERTINIB [Concomitant]
     Active Substance: AUMOLERTINIB
     Indication: Lung adenocarcinoma
     Dosage: 110 MG, QD
     Route: 048
     Dates: start: 20250126

REACTIONS (2)
  - Hepatic function abnormal [Recovering/Resolving]
  - Drug-induced liver injury [Recovering/Resolving]

NARRATIVE: CASE EVENT DATE: 20250603
